FAERS Safety Report 10312201 (Version 1)
Quarter: 2014Q3

REPORT INFORMATION
  Report Type: Spontaneous
  Country: BR (occurrence: BR)
  Receive Date: 20140718
  Receipt Date: 20140718
  Transmission Date: 20150326
  Serious: Yes (Other)
  Sender: FDA-Public Use
  Company Number: BR-ROCHE-1436093

PATIENT
  Age: 40 Year
  Sex: Male
  Weight: 58 kg

DRUGS (4)
  1. PHENYTOIN. [Concomitant]
     Active Substance: PHENYTOIN
     Indication: CONVULSION
     Route: 048
     Dates: start: 20140506
  2. PARACETAMOL [Concomitant]
     Active Substance: ACETAMINOPHEN
     Indication: PAIN MANAGEMENT
     Dosage: ADMINISTERED FOUR TO SIX TIMES A DAY
     Route: 048
  3. ZELBORAF [Suspect]
     Active Substance: VEMURAFENIB
     Indication: MALIGNANT MELANOMA
     Dosage: FOUR TABLETS IN THE MORNING AND FOUR AT NIGHT
     Route: 048
     Dates: start: 20140320, end: 20140529
  4. TRAMADOL [Concomitant]
     Active Substance: TRAMADOL
     Indication: PAIN MANAGEMENT
     Dosage: ADMINISTERED FOUR TO SIX TIMES A DAY
     Route: 048

REACTIONS (2)
  - Dermatitis acneiform [Recovering/Resolving]
  - Diarrhoea [Recovering/Resolving]
